FAERS Safety Report 15585013 (Version 1)
Quarter: 2018Q4

REPORT INFORMATION
  Report Type: Spontaneous
  Country: US (occurrence: US)
  Receive Date: 20181101
  Receipt Date: 20181101
  Transmission Date: 20190205
  Serious: Yes (Disabling)
  Sender: FDA-Public Use
  Company Number: None

PATIENT
  Sex: Female
  Weight: 61.23 kg

DRUGS (8)
  1. LEVOFLOXACIN 250MG [Suspect]
     Active Substance: LEVOFLOXACIN
     Indication: DIVERTICULUM
     Dosage: ?          QUANTITY:250 MG MILLIGRAM(S);OTHER FREQUENCY:1 FOR 7 DAYS;?
  2. PRAVASTATIN. [Concomitant]
     Active Substance: PRAVASTATIN
  3. SOTRLOL [Concomitant]
  4. CIPROFLOXACIN 250MG [Suspect]
     Active Substance: CIPROFLOXACIN
     Indication: URINARY TRACT INFECTION
     Dosage: ?          OTHER FREQUENCY:1 EVERY 12 HRS;?
  5. XARELTO [Concomitant]
     Active Substance: RIVAROXABAN
  6. LOSARTAN. [Concomitant]
     Active Substance: LOSARTAN
  7. TYLENOL [Concomitant]
     Active Substance: ACETAMINOPHEN
  8. ESTRADIOL. [Concomitant]
     Active Substance: ESTRADIOL

REACTIONS (6)
  - Arthralgia [None]
  - Gait disturbance [None]
  - Pain in extremity [None]
  - Malaise [None]
  - Tendon pain [None]
  - Urinary tract infection [None]
